FAERS Safety Report 25067561 (Version 3)
Quarter: 2025Q3

REPORT INFORMATION
  Report Type: Spontaneous
  Country: EU (occurrence: EU)
  Receive Date: 20250312
  Receipt Date: 20250711
  Transmission Date: 20251020
  Serious: Yes (Hospitalization, Other)
  Sender: DR REDDYS
  Company Number: None

PATIENT
  Age: 76 Year
  Sex: Male

DRUGS (12)
  1. ABIRATERONE [Suspect]
     Active Substance: ABIRATERONE
     Indication: Prostate cancer metastatic
     Dosage: ONCE DAILY 1.000 MG
     Route: 048
  2. ABIRATERONE [Suspect]
     Active Substance: ABIRATERONE
     Indication: Prostate cancer
  3. ABIRATERONE [Suspect]
     Active Substance: ABIRATERONE
     Indication: Hormone-refractory prostate cancer
  4. ROSUVASTATIN [Suspect]
     Active Substance: ROSUVASTATIN
     Indication: Product used for unknown indication
     Dosage: 40MG/DAY
  5. PREDNISOLONE [Suspect]
     Active Substance: PREDNISOLONE
     Indication: Prostate cancer metastatic
     Dosage: TWICE DAILY 5 MG
  6. PREDNISOLONE [Suspect]
     Active Substance: PREDNISOLONE
     Indication: Prostate cancer
  7. PREDNISOLONE [Suspect]
     Active Substance: PREDNISOLONE
     Indication: Hormone-refractory prostate cancer
  8. CHLORTHALIDONE [Concomitant]
     Active Substance: CHLORTHALIDONE
     Indication: Ischaemic heart disease prophylaxis
  9. METOPROLOL [Concomitant]
     Active Substance: METOPROLOL
     Indication: Ischaemic heart disease prophylaxis
  10. RIVAROXABAN [Concomitant]
     Active Substance: RIVAROXABAN
     Indication: Ischaemic heart disease prophylaxis
  11. TRIPTORELIN [Concomitant]
     Active Substance: TRIPTORELIN
     Indication: Prostate cancer metastatic
  12. TRIPTORELIN [Concomitant]
     Active Substance: TRIPTORELIN
     Indication: Androgen therapy

REACTIONS (9)
  - Acute kidney injury [Recovering/Resolving]
  - Rhabdomyolysis [Recovering/Resolving]
  - Drug interaction [Recovering/Resolving]
  - Hypocalcaemia [Recovering/Resolving]
  - Hydronephrosis [Recovering/Resolving]
  - Blood urea increased [Recovering/Resolving]
  - Metabolic disorder [Recovering/Resolving]
  - Labelled drug-drug interaction issue [Recovered/Resolved]
  - Toxicity to various agents [Unknown]
